FAERS Safety Report 5165813-X (Version None)
Quarter: 2006Q4

REPORT INFORMATION
  Report Type: 
  Country: None (occurrence: None)
  Receive Date: 20061128
  Receipt Date: 20061114
  Transmission Date: 20070319
  Serious: Yes (Death)
  Sender: FDA-Public Use
  Company Number: POMP-10881

PATIENT
  Age: 5 Month
  Sex: Male
  Weight: 4.9 kg

DRUGS (3)
  1. MYOZYME [Suspect]
     Indication: GLYCOGEN STORAGE DISEASE TYPE II
     Dosage: 20 MG/KG Q2WKS IV
     Route: 042
     Dates: start: 20061011, end: 20061108
  2. CAPTOPRIL [Concomitant]
  3. PROPRANOLOL [Concomitant]

REACTIONS (3)
  - CARDIAC ARREST [None]
  - HYPERTONIA [None]
  - RESPIRATORY ARREST [None]
